FAERS Safety Report 13733589 (Version 2)
Quarter: 2018Q4

REPORT INFORMATION
  Report Type: Other
  Country: FR (occurrence: FR)
  Receive Date: 20170707
  Receipt Date: 20181205
  Transmission Date: 20190204
  Serious: Yes (Hospitalization)
  Sender: FDA-Public Use
  Company Number: FR-GEHC-2017CSU001961

PATIENT

DRUGS (7)
  1. IOMERON [Suspect]
     Active Substance: IOMEPROL
     Indication: PRODUCT USED FOR UNKNOWN INDICATION
     Dosage: UNK, SINGLE
     Route: 042
     Dates: start: 20170606, end: 20170606
  2. INEXIUM                            /01479302/ [Suspect]
     Active Substance: ESOMEPRAZOLE MAGNESIUM
     Indication: PRODUCT USED FOR UNKNOWN INDICATION
     Dosage: 40 MG, UNK
     Route: 048
     Dates: start: 20170608, end: 20170612
  3. AMOXICILLINE/ACIDE CLAVULANIQ. SANDOZ [Suspect]
     Active Substance: AMOXICILLIN\CLAVULANIC ACID
     Indication: PNEUMONIA ASPIRATION
     Dosage: 3 MUMOL/24 HR
     Route: 041
     Dates: start: 20170609, end: 20170609
  4. NIMOTOP [Suspect]
     Active Substance: NIMODIPINE
     Indication: REVERSIBLE ISCHAEMIC NEUROLOGICAL DEFICIT
     Dosage: 2 MG, UNK
     Route: 041
     Dates: start: 20170606, end: 20170608
  5. KETOPROFENE MEDAC [Suspect]
     Active Substance: KETOPROFEN
     Indication: HEADACHE
     Dosage: UNK
     Route: 041
     Dates: start: 20170607, end: 20170611
  6. VISIPAQUE [Suspect]
     Active Substance: IODIXANOL
     Indication: PRODUCT USED FOR UNKNOWN INDICATION
     Dosage: UNK UNK, SINGLE
     Route: 013
     Dates: start: 20170606, end: 20170606
  7. IOMERON [Suspect]
     Active Substance: IOMEPROL
     Dosage: UNK, SINGLE
     Route: 042
     Dates: start: 20170609, end: 20170609

REACTIONS (1)
  - Acute generalised exanthematous pustulosis [Recovered/Resolved]

NARRATIVE: CASE EVENT DATE: 20170609
